FAERS Safety Report 8242404-5 (Version None)
Quarter: 2012Q1

REPORT INFORMATION
  Report Type: 
  Country: None (occurrence: None)
  Receive Date: 20120329
  Receipt Date: 20120321
  Transmission Date: 20120608
  Serious: Yes (Other)
  Sender: FDA-Public Use
  Company Number: US-JNJFOC-20120310880

PATIENT
  Sex: Female
  Weight: 45.81 kg

DRUGS (4)
  1. FENTANYL CITRATE [Suspect]
     Indication: ABDOMINAL PAIN UPPER
     Route: 062
  2. CREON [Concomitant]
     Indication: GASTRIC DISORDER
     Route: 048
  3. DURAGESIC-100 [Suspect]
     Indication: ABDOMINAL PAIN UPPER
     Route: 062
     Dates: start: 20090201
  4. DEXILANT [Concomitant]
     Indication: GASTRIC DISORDER
     Route: 048

REACTIONS (4)
  - WITHDRAWAL SYNDROME [None]
  - WEIGHT GAIN POOR [None]
  - STAPHYLOCOCCAL INFECTION [None]
  - PRODUCT QUALITY ISSUE [None]
